FAERS Safety Report 5461152-8 (Version None)
Quarter: 2007Q3

REPORT INFORMATION
  Report Type: 
  Country: None (occurrence: None)
  Receive Date: 20070920
  Receipt Date: 20070910
  Transmission Date: 20080115
  Serious: Yes (Hospitalization)
  Sender: FDA-Public Use
  Company Number: DE-JNJFOC-20070901522

PATIENT

DRUGS (3)
  1. REMINYL [Suspect]
     Indication: DRUG USE FOR UNKNOWN INDICATION
     Route: 048
  2. REMINYL [Concomitant]
  3. FALITHROM [Concomitant]
     Indication: ATRIAL FIBRILLATION

REACTIONS (2)
  - MYOCLONUS [None]
  - SPEECH DISORDER [None]
